FAERS Safety Report 18494298 (Version 2)
Quarter: 2020Q4

REPORT INFORMATION
  Report Type: Report from Study
  Country: US (occurrence: US)
  Receive Date: 20201111
  Receipt Date: 20201118
  Transmission Date: 20210114
  Serious: Yes (Other)
  Sender: FDA-Public Use
  Company Number: US-BIOGEN-2020BI00943357

PATIENT
  Sex: Female

DRUGS (2)
  1. TECFIDERA [Suspect]
     Active Substance: DIMETHYL FUMARATE
     Indication: MULTIPLE SCLEROSIS
     Route: 065
     Dates: start: 20130614, end: 20140701
  2. TECFIDERA [Suspect]
     Active Substance: DIMETHYL FUMARATE
     Route: 065
     Dates: start: 20200709, end: 20201003

REACTIONS (10)
  - Hand deformity [Unknown]
  - Diabetes mellitus inadequate control [Not Recovered/Not Resolved]
  - Visual acuity reduced [Not Recovered/Not Resolved]
  - Peroneal nerve palsy [Unknown]
  - Muscle strain [Unknown]
  - Foot deformity [Unknown]
  - Diaphragmatic disorder [Unknown]
  - Formication [Not Recovered/Not Resolved]
  - Renal failure [Not Recovered/Not Resolved]
  - Laryngeal disorder [Unknown]
